FAERS Safety Report 10349578 (Version 1)
Quarter: 2014Q3

REPORT INFORMATION
  Report Type: Spontaneous
  Country: BR (occurrence: BR)
  Receive Date: 20140730
  Receipt Date: 20140730
  Transmission Date: 20150326
  Serious: Yes (Other)
  Sender: FDA-Public Use
  Company Number: BR-ROCHE-1439854

PATIENT
  Sex: Female
  Weight: 62 kg

DRUGS (3)
  1. SYNTHROID [Concomitant]
     Active Substance: LEVOTHYROXINE SODIUM
     Indication: THYROID DISORDER
     Dosage: IN THE MORNING
     Route: 065
  2. TORLOS H [Concomitant]
     Indication: BLOOD PRESSURE
     Dosage: IN THE MORNING
     Route: 065
  3. RIVOTRIL [Suspect]
     Active Substance: CLONAZEPAM
     Indication: DEPRESSION
     Dosage: AT NIGHT
     Route: 048

REACTIONS (12)
  - Palpitations [Unknown]
  - Nightmare [Unknown]
  - Dependence [Not Recovered/Not Resolved]
  - Dementia Alzheimer^s type [Unknown]
  - Memory impairment [Not Recovered/Not Resolved]
  - Osteopenia [Unknown]
  - Abnormal behaviour [Not Recovered/Not Resolved]
  - American trypanosomiasis [Unknown]
  - Insomnia [Unknown]
  - Nervous system disorder [Not Recovered/Not Resolved]
  - Irritability [Not Recovered/Not Resolved]
  - Migraine with aura [Unknown]
